FAERS Safety Report 4622151-9 (Version None)
Quarter: 2005Q1

REPORT INFORMATION
  Report Type: 
  Country: None (occurrence: None)
  Receive Date: 20050328
  Receipt Date: 20050317
  Transmission Date: 20050727
  Serious: Yes (Hospitalization, Disabling)
  Sender: FDA-Public Use
  Company Number: 2005-03-1178

PATIENT
  Age: 35 Year
  Sex: Female

DRUGS (2)
  1. VIRAFERONPEG [Suspect]
     Dosage: UNKNOWN SUBCUTANEOUS
     Route: 058
     Dates: start: 20050201
  2. REBETOL [Suspect]
     Dosage: UNKNOWN ORAL
     Route: 048
     Dates: start: 20050201

REACTIONS (3)
  - ABASIA [None]
  - PARALYSIS [None]
  - SUICIDAL IDEATION [None]
